FAERS Safety Report 7557273-6 (Version None)
Quarter: 2011Q2

REPORT INFORMATION
  Report Type: 
  Country: None (occurrence: None)
  Receive Date: 20110620
  Receipt Date: 20110606
  Transmission Date: 20111010
  Serious: Yes (Hospitalization, Other)
  Sender: FDA-Public Use
  Company Number: US-ROCHE-781042

PATIENT
  Sex: Female

DRUGS (4)
  1. CYCLOPHOSPHAMIDE/DOXORUBICIN [Suspect]
     Dosage: DOXORUBICIN-CYCLOPHOSPHAMIDE AT A DOSE OF 60-600 MG/M2
     Route: 065
  2. PEGFILGRASTIM [Concomitant]
     Dosage: ON DAY 2
     Route: 058
  3. BEVACIZUMAB [Suspect]
     Indication: BREAST CANCER
     Route: 065
  4. PACLITAXEL [Suspect]
     Indication: BREAST CANCER
     Dosage: FOR 4 CYCLES
     Route: 042

REACTIONS (8)
  - PNEUMONITIS [None]
  - DECREASED APPETITE [None]
  - FEBRILE NEUTROPENIA [None]
  - PERIPHERAL SENSORY NEUROPATHY [None]
  - EJECTION FRACTION DECREASED [None]
  - DEHYDRATION [None]
  - MUCOSAL INFLAMMATION [None]
  - FATIGUE [None]
